FAERS Safety Report 8421887-1 (Version None)
Quarter: 2012Q2

REPORT INFORMATION
  Report Type: 
  Country: None (occurrence: None)
  Receive Date: 20120608
  Receipt Date: 20120531
  Transmission Date: 20120825
  Serious: Yes (Death)
  Sender: FDA-Public Use
  Company Number: US-ELI_LILLY_AND_COMPANY-US201205003575

PATIENT
  Sex: Female
  Weight: 78.458 kg

DRUGS (11)
  1. FORTEO [Suspect]
     Indication: OSTEOPOROSIS
  2. BUSPIRONE HCL [Concomitant]
  3. VITAMIN D [Concomitant]
  4. DANTROLENE SODIUM [Concomitant]
  5. MS CONTIN [Concomitant]
  6. FERROUS SULFATE TAB [Concomitant]
  7. TYLENOL                                 /SCH/ [Concomitant]
  8. FENTANYL [Concomitant]
  9. GABAPENTIN [Concomitant]
  10. DIAZEPAM [Concomitant]
  11. DILAUDID [Concomitant]

REACTIONS (1)
  - ACCIDENTAL OVERDOSE [None]
